FAERS Safety Report 18105753 (Version 1)
Quarter: 2020Q3

REPORT INFORMATION
  Report Type: Report from Study
  Country: PL (occurrence: PL)
  Receive Date: 20200804
  Receipt Date: 20200804
  Transmission Date: 20201103
  Serious: Yes (Death)
  Sender: FDA-Public Use
  Company Number: PL-EMD SERONO-E2B_90078985

PATIENT
  Age: 68 Year
  Sex: Female

DRUGS (7)
  1. ATEZOLIZUMAB. [Suspect]
     Active Substance: ATEZOLIZUMAB
     Indication: SMALL CELL LUNG CANCER
     Dosage: 120 MG, Q3W
     Route: 042
     Dates: end: 201806
  2. ETOPOSIDE. [Suspect]
     Active Substance: ETOPOSIDE
     Indication: SMALL CELL LUNG CANCER
     Dosage: 120 MG/M2(4CYCLES) 120 MG/M2, CYCLIC (OVER THREE SUCCESSIVE DAYS, EVERY THREE WEEKS)
  3. OMEPRAZOLE. [Suspect]
     Active Substance: OMEPRAZOLE
     Indication: ABDOMINAL PAIN UPPER
     Dosage: UNK
  4. CARBOPLATIN. [Suspect]
     Active Substance: CARBOPLATIN
     Indication: SMALL CELL LUNG CANCER
     Dosage: 4 UNK, CYCLIC?AUC 5, CYCLIC (ON DAY 1, EVERY THREE WEEKS)
  5. METFORMIN [Suspect]
     Active Substance: METFORMIN HYDROCHLORIDE
     Indication: TYPE 2 DIABETES MELLITUS
     Dosage: UNK
     Dates: start: 2015
  6. PARACETAMOL W/TRAMADOL [Suspect]
     Active Substance: ACETAMINOPHEN\TRAMADOL
     Indication: CHEST PAIN
     Dosage: UNK
     Dates: end: 201705
  7. LEVOTHYROXINE. [Suspect]
     Active Substance: LEVOTHYROXINE
     Indication: HYPOTHYROIDISM
     Dosage: UNK

REACTIONS (11)
  - Hypothyroidism [Fatal]
  - Neutropenia [Fatal]
  - Blood alkaline phosphatase increased [Fatal]
  - Condition aggravated [Fatal]
  - Anxiety [Fatal]
  - Vomiting [Unknown]
  - Arthralgia [Fatal]
  - Hypokalaemia [Fatal]
  - Lung neoplasm malignant [Fatal]
  - Oedema peripheral [Fatal]
  - Anaemia [Fatal]
